FAERS Safety Report 7387317-6 (Version None)
Quarter: 2011Q1

REPORT INFORMATION
  Report Type: 
  Country: None (occurrence: None)
  Receive Date: 20110331
  Receipt Date: 20110324
  Transmission Date: 20110831
  Serious: Yes (Death, Hospitalization)
  Sender: FDA-Public Use
  Company Number: MX-BRISTOL-MYERS SQUIBB COMPANY-15633498

PATIENT
  Age: 59 Year
  Sex: Female

DRUGS (2)
  1. ABATACEPT [Suspect]
     Indication: RHEUMATOID ARTHRITIS
     Route: 058
     Dates: start: 20081030
  2. FOLIC ACID [Concomitant]
     Dates: start: 20080901, end: 20110313

REACTIONS (2)
  - PNEUMONIA [None]
  - KIDNEY INFECTION [None]
